FAERS Safety Report 4297827-6 (Version None)
Quarter: 2004Q1

REPORT INFORMATION
  Report Type: 
  Country: None (occurrence: None)
  Receive Date: 20040126
  Receipt Date: 20030917
  Transmission Date: 20041129
  Serious: No
  Sender: FDA-Public Use
  Company Number: USA030947584

PATIENT
  Age: 30 Year
  Sex: Female
  Weight: 71 kg

DRUGS (13)
  1. STRATTERA [Suspect]
     Indication: ATTENTION DEFICIT/HYPERACTIVITY DISORDER
     Dosage: 120 MG/DAY
     Dates: start: 20030601, end: 20030917
  2. ZOLOFT [Concomitant]
  3. NEURONTIN [Concomitant]
  4. TRAZODONE HCL [Concomitant]
  5. ALBUTEROL [Concomitant]
  6. SEREVENT [Concomitant]
  7. FLOVENT [Concomitant]
  8. FLONASE [Concomitant]
  9. VALTREX [Concomitant]
  10. ZYRTEC [Concomitant]
  11. OMEPRAZOLE [Concomitant]
  12. NAPROXEN [Concomitant]
  13. ADDERALL 10 [Concomitant]

REACTIONS (12)
  - AMENORRHOEA [None]
  - BREAST DISCHARGE [None]
  - FATIGUE [None]
  - HOT FLUSH [None]
  - HYPERTENSION [None]
  - LIBIDO DECREASED [None]
  - MOOD SWINGS [None]
  - PRESCRIBED OVERDOSE [None]
  - RESIDUAL URINE VOLUME [None]
  - URINARY HESITATION [None]
  - URINARY INCONTINENCE [None]
  - WEIGHT INCREASED [None]
